FAERS Safety Report 21888648 (Version 1)
Quarter: 2023Q1

REPORT INFORMATION
  Report Type: Report from Study
  Country: ES (occurrence: ES)
  Receive Date: 20230120
  Receipt Date: 20230120
  Transmission Date: 20230417
  Serious: Yes (Hospitalization)
  Sender: FDA-Public Use
  Company Number: ES-Taiho Oncology Inc-EU-2022-01348

PATIENT
  Age: 61 Year
  Sex: Female

DRUGS (3)
  1. FUTIBATINIB [Suspect]
     Active Substance: FUTIBATINIB
     Indication: Adenoid cystic carcinoma
     Dosage: CURRENT CYCLE UNKNOWN.
     Route: 048
     Dates: start: 20220518, end: 20220522
  2. ZOLPIDEM [Concomitant]
     Active Substance: ZOLPIDEM TARTRATE
     Indication: Insomnia
     Route: 048
     Dates: start: 2016
  3. VORTIOXETINE [Concomitant]
     Active Substance: VORTIOXETINE
     Indication: Antidepressant therapy
     Route: 048
     Dates: start: 2016

REACTIONS (1)
  - Pancreatitis [Recovered/Resolved]

NARRATIVE: CASE EVENT DATE: 20220523
